FAERS Safety Report 5892618-4 (Version None)
Quarter: 2008Q3

REPORT INFORMATION
  Report Type: 
  Country: None (occurrence: None)
  Receive Date: 20080919
  Receipt Date: 20080919
  Transmission Date: 20090109
  Serious: No
  Sender: FDA-Public Use
  Company Number: None

PATIENT
  Age: 13 Month
  Sex: Female
  Weight: 11.3399 kg

DRUGS (1)
  1. MIRALAX [Suspect]
     Indication: CONSTIPATION
     Dosage: CAP FULL DAILY PO
     Route: 048
     Dates: start: 20080519, end: 20080915

REACTIONS (8)
  - ABNORMAL BEHAVIOUR [None]
  - ANGER [None]
  - BRUXISM [None]
  - DYSKINESIA [None]
  - FEELING DRUNK [None]
  - MUSCLE TWITCHING [None]
  - PARANOIA [None]
  - RASH [None]
